FAERS Safety Report 7008291-8 (Version None)
Quarter: 2010Q3

REPORT INFORMATION
  Report Type: 
  Country: None (occurrence: None)
  Receive Date: 20100922
  Receipt Date: 20100915
  Transmission Date: 20110219
  Serious: Yes (Hospitalization)
  Sender: FDA-Public Use
  Company Number: A0833403A

PATIENT
  Sex: Male
  Weight: 95.9 kg

DRUGS (14)
  1. AVANDIA [Suspect]
     Indication: DIABETES MELLITUS
     Dosage: 4MG TWICE PER DAY
     Route: 048
     Dates: start: 20041102, end: 20070427
  2. METOPROLOL TARTRATE [Concomitant]
  3. LOSARTAN POTASSIUM [Concomitant]
  4. ZOCOR [Concomitant]
  5. PRANDIN [Concomitant]
  6. OMEPRAZOLE [Concomitant]
  7. INSULIN [Concomitant]
  8. PROZAC [Concomitant]
  9. OXYGEN [Concomitant]
  10. METFORMIN [Concomitant]
  11. PRANDIN [Concomitant]
  12. AMARYL [Concomitant]
  13. GLARGINE [Concomitant]
  14. HYZAAR [Concomitant]

REACTIONS (6)
  - CARDIAC FAILURE CONGESTIVE [None]
  - CARDIOMYOPATHY [None]
  - CARDIOVASCULAR DISORDER [None]
  - CORONARY ARTERY DISEASE [None]
  - INTRACARDIAC THROMBUS [None]
  - PERICARDIAL EFFUSION [None]
